FAERS Safety Report 9335332 (Version 1)
Quarter: 2013Q2

REPORT INFORMATION
  Report Type: Spontaneous
  Country: US (occurrence: US)
  Receive Date: 20130606
  Receipt Date: 20130606
  Transmission Date: 20140414
  Serious: Yes (Hospitalization, Other)
  Sender: FDA-Public Use
  Company Number: US-JNJFOC-20130522995

PATIENT
  Age: 57 Year
  Sex: Female
  Weight: 65.77 kg

DRUGS (4)
  1. TOPAMAX [Suspect]
     Indication: MIGRAINE
     Route: 048
  2. BACLOFEN [Concomitant]
     Indication: SCHIZOPHRENIA
     Route: 048
  3. BACLOFEN [Concomitant]
     Indication: MIGRAINE
     Route: 048
  4. VALIUM [Concomitant]
     Indication: SEDATION
     Route: 065

REACTIONS (7)
  - Fall [Unknown]
  - Head injury [Unknown]
  - Coma [Unknown]
  - Suicidal ideation [Not Recovered/Not Resolved]
  - Burns second degree [Not Recovered/Not Resolved]
  - Burns third degree [Not Recovered/Not Resolved]
  - Personality disorder [Not Recovered/Not Resolved]
